FAERS Safety Report 20360691 (Version 1)
Quarter: 2022Q1

REPORT INFORMATION
  Report Type: Spontaneous
  Country: US (occurrence: US)
  Receive Date: 20220121
  Receipt Date: 20220121
  Transmission Date: 20220423
  Serious: No
  Sender: FDA-Public Use
  Company Number: US-SA-SAC20220118000966

PATIENT
  Age: 52 Year
  Sex: Female

DRUGS (13)
  1. DUPIXENT [Suspect]
     Active Substance: DUPILUMAB
     Indication: Dermatitis atopic
     Dosage: 300 MG, QOW
     Route: 058
     Dates: start: 2020
  2. DUPIXENT [Suspect]
     Active Substance: DUPILUMAB
     Indication: Dermatitis allergic
  3. CLOBETASOL [Concomitant]
     Active Substance: CLOBETASOL
  4. HYDROXYZINE HYDROCHLORIDE [Concomitant]
     Active Substance: HYDROXYZINE HYDROCHLORIDE
  5. DIOVAN [Concomitant]
     Active Substance: VALSARTAN
  6. NORVASC [Concomitant]
     Active Substance: AMLODIPINE BESYLATE
  7. PROVENTIL HFA [SALBUTAMOL] [Concomitant]
  8. CYCLOSPORINE [Concomitant]
     Active Substance: CYCLOSPORINE
  9. CELEBREX [Concomitant]
     Active Substance: CELECOXIB
  10. EUCRISA [Concomitant]
     Active Substance: CRISABOROLE
  11. ESOMEPRAZOLE MAGNESIUM [Concomitant]
     Active Substance: ESOMEPRAZOLE MAGNESIUM
  12. TIZANIDINE HYDROCHLORIDE [Concomitant]
     Active Substance: TIZANIDINE HYDROCHLORIDE
  13. ZYRTEC [Concomitant]
     Active Substance: CETIRIZINE HYDROCHLORIDE

REACTIONS (8)
  - Fatigue [Unknown]
  - Nasopharyngitis [Unknown]
  - Illness [Unknown]
  - Dizziness [Unknown]
  - Vision blurred [Unknown]
  - Rash [Unknown]
  - Feeling abnormal [Unknown]
  - Product dose omission issue [Unknown]

NARRATIVE: CASE EVENT DATE: 20211101
